FAERS Safety Report 25956209 (Version 1)
Quarter: 2025Q4

REPORT INFORMATION
  Report Type: Other
  Country: AR (occurrence: AR)
  Receive Date: 20251024
  Receipt Date: 20251024
  Transmission Date: 20260118
  Serious: Yes (Death, Hospitalization)
  Sender: NOVITIUM PHARMA
  Company Number: AR-NOVITIUM PHARMA-000133

PATIENT
  Age: 49 Year
  Sex: Female

DRUGS (7)
  1. PYRAZINAMIDE [Suspect]
     Active Substance: PYRAZINAMIDE
     Indication: Extrapulmonary tuberculosis
     Dates: start: 20060128
  2. METHYLPREDNISOLONE SODIUM SUCCINATE [Concomitant]
     Active Substance: METHYLPREDNISOLONE SODIUM SUCCINATE
     Indication: Transplant rejection
  3. CYCLOSPORINE [Concomitant]
     Active Substance: CYCLOSPORINE
     Indication: Immunosuppressant drug therapy
  4. MEPREDNISONE [Concomitant]
     Active Substance: MEPREDNISONE
     Indication: Immunosuppressant drug therapy
  5. ISONIAZID [Concomitant]
     Active Substance: ISONIAZID
     Indication: Extrapulmonary tuberculosis
     Dates: start: 20060128
  6. ETHAMBUTOL [Concomitant]
     Active Substance: ETHAMBUTOL HYDROCHLORIDE
     Indication: Extrapulmonary tuberculosis
     Dates: start: 20060128
  7. LEVOFLOXACIN [Concomitant]
     Active Substance: LEVOFLOXACIN
     Indication: Extrapulmonary tuberculosis
     Dates: start: 20060128

REACTIONS (1)
  - Drug ineffective [Fatal]
